FAERS Safety Report 5318494-6 (Version None)
Quarter: 2007Q2

REPORT INFORMATION
  Report Type: 
  Country: None (occurrence: None)
  Receive Date: 20070501
  Receipt Date: 20070419
  Transmission Date: 20071010
  Serious: Yes (Hospitalization, Other)
  Sender: FDA-Public Use
  Company Number: 2007-01157

PATIENT
  Sex: 0

DRUGS (1)
  1. VELCADE [Suspect]
     Indication: MYELODYSPLASTIC SYNDROME
     Dosage: INTRAVENOUS
     Route: 042

REACTIONS (5)
  - FEBRILE NEUTROPENIA [None]
  - GENERAL PHYSICAL HEALTH DETERIORATION [None]
  - MUCOSAL INFLAMMATION [None]
  - MYALGIA [None]
  - NEUTROPENIA [None]
